FAERS Safety Report 9099121 (Version 1)
Quarter: 2013Q1

REPORT INFORMATION
  Report Type: Spontaneous
  Country: US (occurrence: US)
  Receive Date: 20130213
  Receipt Date: 20130213
  Transmission Date: 20140127
  Serious: No
  Sender: FDA-Public Use
  Company Number: US-PFIZER INC-2013053481

PATIENT
  Sex: Female

DRUGS (2)
  1. ALDACTONE [Suspect]
     Indication: BLOOD POTASSIUM ABNORMAL
     Dosage: 100 MG, 2X/DAY
     Route: 048
  2. ALDACTONE [Suspect]
     Dosage: 100 MG (2 TABLETS OF 50MG), 2X/DAY
     Route: 048

REACTIONS (3)
  - Oedema [Unknown]
  - Generalised oedema [Unknown]
  - Drug effect decreased [Unknown]
